FAERS Safety Report 23436905 (Version 1)
Quarter: 2024Q1

REPORT INFORMATION
  Report Type: Spontaneous
  Country: FR (occurrence: FR)
  Receive Date: 20240124
  Receipt Date: 20240124
  Transmission Date: 20240410
  Serious: Yes (Other)
  Sender: FDA-Public Use
  Company Number: FR-GLAXOSMITHKLINE-FR2024GSK010050

PATIENT

DRUGS (4)
  1. LAMOTRIGINE [Suspect]
     Active Substance: LAMOTRIGINE
     Indication: Depressive symptom
     Dosage: 50 MG, QD
  2. LAMOTRIGINE [Suspect]
     Active Substance: LAMOTRIGINE
     Dosage: 100 MG, QD
  3. LAMOTRIGINE [Suspect]
     Active Substance: LAMOTRIGINE
     Dosage: 150 MG, QD
  4. LAMOTRIGINE [Suspect]
     Active Substance: LAMOTRIGINE
     Dosage: 200 MG, QD

REACTIONS (17)
  - Drug reaction with eosinophilia and systemic symptoms [Unknown]
  - Lymphadenopathy [Unknown]
  - Neck pain [Unknown]
  - Pharyngitis [Unknown]
  - Rash macular [Unknown]
  - Rash maculo-papular [Unknown]
  - Rash pruritic [Unknown]
  - Skin injury [Unknown]
  - Condition aggravated [Unknown]
  - General physical health deterioration [Unknown]
  - Rash [Unknown]
  - Testicular injury [Unknown]
  - Face oedema [Unknown]
  - Pyrexia [Unknown]
  - Eosinophilia [Unknown]
  - Liver injury [Unknown]
  - Inflammation [Unknown]
